FAERS Safety Report 6181032-2 (Version None)
Quarter: 2009Q2

REPORT INFORMATION
  Report Type: 
  Country: None (occurrence: None)
  Receive Date: 20090506
  Receipt Date: 20090304
  Transmission Date: 20091009
  Serious: No
  Sender: FDA-Public Use
  Company Number: US-BAYER-200910735BCC

PATIENT
  Age: 83 Year
  Sex: Male
  Weight: 64 kg

DRUGS (3)
  1. ALEVE [Suspect]
     Indication: HERNIA REPAIR
     Dosage: UNIT DOSE: 220 MG
     Route: 048
     Dates: start: 20090302, end: 20090303
  2. BLOOD PRESSURE MEDICATION [Concomitant]
     Indication: BLOOD PRESSURE MANAGEMENT
     Route: 065
  3. OMEPRAZOLE [Concomitant]
     Indication: DRUG USE FOR UNKNOWN INDICATION
     Route: 065

REACTIONS (1)
  - BLOOD GLUCOSE INCREASED [None]
